FAERS Safety Report 9283161 (Version 1)
Quarter: 2013Q2

REPORT INFORMATION
  Report Type: Spontaneous
  Country: US (occurrence: US)
  Receive Date: 20130510
  Receipt Date: 20130510
  Transmission Date: 20140414
  Serious: No
  Sender: FDA-Public Use
  Company Number: US-GLAXOSMITHKLINE-A0983631A

PATIENT
  Sex: Female
  Weight: 75.9 kg

DRUGS (11)
  1. TYKERB [Suspect]
     Indication: BREAST CANCER
     Dosage: 1000MG PER DAY
     Route: 048
  2. HERCEPTIN [Suspect]
     Indication: PRODUCT USED FOR UNKNOWN INDICATION
     Dosage: 440MG UNKNOWN
     Route: 065
  3. PROMETHAZINE [Concomitant]
     Route: 048
  4. ZOFRAN [Concomitant]
     Route: 048
  5. HYDROCODONE/APAP [Concomitant]
  6. LETROZOLE [Concomitant]
  7. ZOMETA [Concomitant]
  8. GABAPENTIN [Concomitant]
  9. SENNA [Concomitant]
  10. SPIRONOLACTONE [Concomitant]
  11. BACLOFEN [Concomitant]

REACTIONS (4)
  - Breast pain [Unknown]
  - Dry skin [Unknown]
  - Diarrhoea [Unknown]
  - Insomnia [Unknown]
